FAERS Safety Report 21669687 (Version 1)
Quarter: 2022Q4

REPORT INFORMATION
  Report Type: Spontaneous
  Country: DE (occurrence: DE)
  Receive Date: 20221201
  Receipt Date: 20221201
  Transmission Date: 20230112
  Serious: Yes (Hospitalization, Other)
  Sender: FDA-Public Use
  Company Number: DE-002147023-PHHY2019DE225233

PATIENT
  Sex: Female
  Weight: 53 kg

DRUGS (3)
  1. FEMARA [Suspect]
     Active Substance: LETROZOLE
     Indication: Hormone refractory breast cancer
     Dosage: 2.5 MG, QD
     Route: 065
     Dates: start: 201306, end: 201906
  2. FEMARA [Suspect]
     Active Substance: LETROZOLE
     Dosage: UNK
     Route: 065
     Dates: start: 20191102, end: 20191103
  3. VITAMIN D NOS [Concomitant]
     Active Substance: VITAMIN D NOS
     Indication: Breast cancer
     Dosage: 2 DF, QD
     Route: 065
     Dates: start: 201301

REACTIONS (11)
  - Pneumococcal infection [Recovered/Resolved]
  - Pneumonia [Recovered/Resolved]
  - Hypertension [Recovered/Resolved]
  - Genital haemorrhage [Recovered/Resolved]
  - Palpitations [Recovered/Resolved]
  - Asthenia [Recovered/Resolved]
  - Malaise [Recovered/Resolved]
  - Vaginal haemorrhage [Recovered/Resolved]
  - Herpes zoster [Unknown]
  - Pelvic discomfort [Unknown]
  - Vulvovaginal dryness [Recovered/Resolved]

NARRATIVE: CASE EVENT DATE: 20180101
